FAERS Safety Report 5324152-4 (Version None)
Quarter: 2007Q2

REPORT INFORMATION
  Report Type: 
  Country: None (occurrence: None)
  Receive Date: 20070507
  Receipt Date: 20070421
  Transmission Date: 20071010
  Serious: Yes (Death)
  Sender: FDA-Public Use
  Company Number: 2007BM000049

PATIENT
  Age: 71 Year
  Sex: Male

DRUGS (3)
  1. PREDNISOLONE [Suspect]
     Dosage: 60 MG; PO
     Route: 048
  2. METHYLPREDNISOLONE [Suspect]
  3. ORAPRED [Suspect]

REACTIONS (5)
  - ASPERGILLOMA [None]
  - GLOMERULONEPHRITIS RAPIDLY PROGRESSIVE [None]
  - PNEUMONIA CYTOMEGALOVIRAL [None]
  - RENAL FAILURE [None]
  - RESPIRATORY FAILURE [None]
